FAERS Safety Report 17713141 (Version 2)
Quarter: 2020Q2

REPORT INFORMATION
  Report Type: Report from Study
  Country: DE (occurrence: DE)
  Receive Date: 20200427
  Receipt Date: 20200601
  Transmission Date: 20200714
  Serious: Yes (Hospitalization, Other)
  Sender: FDA-Public Use
  Company Number: DE-SHIRE-DE202008066

PATIENT

DRUGS (12)
  1. VON WILLEBRAND FACTOR [Suspect]
     Active Substance: VON WILLEBRAND FACTOR HUMAN
     Dosage: 1950 INTERNATIONAL UNIT, 3X/DAY:TID
     Route: 042
     Dates: start: 20200311
  2. VON WILLEBRAND FACTOR [Suspect]
     Active Substance: VON WILLEBRAND FACTOR HUMAN
     Dosage: 2600 INTERNATIONAL UNIT, 1X/DAY:QD
     Route: 042
     Dates: start: 20200417, end: 20200417
  3. VON WILLEBRAND FACTOR [Suspect]
     Active Substance: VON WILLEBRAND FACTOR HUMAN
     Dosage: 1300 UNK
     Route: 042
     Dates: start: 20200228
  4. VON WILLEBRAND FACTOR [Suspect]
     Active Substance: VON WILLEBRAND FACTOR HUMAN
     Dosage: UNK
     Route: 065
     Dates: start: 20200214
  5. VON WILLEBRAND FACTOR [Suspect]
     Active Substance: VON WILLEBRAND FACTOR HUMAN
     Dosage: 1300 INTERNATIONAL UNIT, 3X A WEEK
     Route: 042
     Dates: start: 20200320
  6. VON WILLEBRAND FACTOR [Suspect]
     Active Substance: VON WILLEBRAND FACTOR HUMAN
     Dosage: 650 INTERNATIONAL UNIT, 3X/DAY:TID
     Route: 042
     Dates: start: 20200320
  7. NOVAMINE [Concomitant]
     Active Substance: ALANINE\ARGININE\ASPARTIC ACID\GLUTAMIC ACID\GLYCINE\HISTIDINE\ISOLEUCINE\LEUCINE\LYSINE ACETATE\METHIONINE\PHENYLALANINE\PROLINE\SERINE\THREONINE\TRYPTOPHAN\TYROSINE\VALINE
     Indication: PRODUCT USED FOR UNKNOWN INDICATION
     Dosage: 1 GRAM, 4X/DAY:QID
  8. VON WILLEBRAND FACTOR [Suspect]
     Active Substance: VON WILLEBRAND FACTOR HUMAN
     Indication: VON WILLEBRAND^S DISEASE
     Dosage: 1300 INTERNATIONAL UNIT, 3X A WEEK
     Route: 042
     Dates: start: 20200228, end: 20200228
  9. VON WILLEBRAND FACTOR [Suspect]
     Active Substance: VON WILLEBRAND FACTOR HUMAN
     Dosage: 650 INTERNATIONAL UNIT, 3X A WEEK
     Route: 042
     Dates: start: 20200228, end: 20200228
  10. VON WILLEBRAND FACTOR [Suspect]
     Active Substance: VON WILLEBRAND FACTOR HUMAN
     Dosage: 650 UNK
     Route: 042
     Dates: start: 20200228
  11. NOVAMINE [Concomitant]
     Active Substance: ALANINE\ARGININE\ASPARTIC ACID\GLUTAMIC ACID\GLYCINE\HISTIDINE\ISOLEUCINE\LEUCINE\LYSINE ACETATE\METHIONINE\PHENYLALANINE\PROLINE\SERINE\THREONINE\TRYPTOPHAN\TYROSINE\VALINE
     Dosage: 500 MILLIGRAM, 3X/DAY:TID
  12. VON WILLEBRAND FACTOR [Suspect]
     Active Substance: VON WILLEBRAND FACTOR HUMAN
     Dosage: 1950 INTERNATIONAL UNIT, 3X/DAY:TID
     Route: 042
     Dates: start: 20200322, end: 20200322

REACTIONS (8)
  - Retroperitoneal haematoma [Recovered/Resolved with Sequelae]
  - Hepatic cirrhosis [Unknown]
  - Retroperitoneal haemorrhage [Unknown]
  - Bronchitis [Unknown]
  - Platelet disorder [Unknown]
  - Varicose vein [Unknown]
  - Haemoglobin decreased [Recovering/Resolving]
  - Dyspnoea [Recovering/Resolving]

NARRATIVE: CASE EVENT DATE: 20200217
